FAERS Safety Report 17299430 (Version 2)
Quarter: 2020Q1

REPORT INFORMATION
  Report Type: Spontaneous
  Country: CA (occurrence: CA)
  Receive Date: 20200122
  Receipt Date: 20200127
  Transmission Date: 20200409
  Serious: Yes (Other)
  Sender: FDA-Public Use
  Company Number: CA-PFIZER INC-2020023081

PATIENT
  Age: 36 Year
  Sex: Female

DRUGS (2)
  1. PROSTIN E2 [Suspect]
     Active Substance: DINOPROSTONE
     Dosage: 2 MG, UNK
  2. PROSTIN E2 [Suspect]
     Active Substance: DINOPROSTONE
     Dosage: 2 MG, UNK
     Route: 067

REACTIONS (2)
  - Uterine tachysystole [Unknown]
  - Uterine hyperstimulation [Unknown]
